FAERS Safety Report 10337839 (Version 1)
Quarter: 2014Q3

REPORT INFORMATION
  Report Type: Spontaneous
  Country: DE (occurrence: DE)
  Receive Date: 20140724
  Receipt Date: 20140724
  Transmission Date: 20150326
  Serious: Yes (Death)
  Sender: FDA-Public Use
  Company Number: DE-ROCHE-1437440

PATIENT
  Age: 65 Year
  Sex: Male

DRUGS (5)
  1. AVASTIN [Suspect]
     Active Substance: BEVACIZUMAB
     Indication: RECTAL CANCER
     Route: 042
     Dates: start: 201310
  2. CAPECITABINE [Concomitant]
     Active Substance: CAPECITABINE
     Indication: RECTAL CANCER
     Route: 048
     Dates: start: 201306
  3. MITOMYCIN C [Concomitant]
     Active Substance: MITOMYCIN
     Indication: RECTAL CANCER
     Route: 048
     Dates: start: 201401
  4. TARGINACT [Concomitant]
     Indication: TUMOUR PAIN
     Dosage: 20 MG/10 MG
     Route: 048
     Dates: start: 201405
  5. NOVAMINSULFON [Concomitant]
     Active Substance: METAMIZOLE
     Indication: TUMOUR PAIN
     Route: 048
     Dates: start: 201306

REACTIONS (2)
  - Sepsis [Fatal]
  - Necrotising fasciitis [Fatal]

NARRATIVE: CASE EVENT DATE: 20140521
